FAERS Safety Report 12067517 (Version 1)
Quarter: 2016Q1

REPORT INFORMATION
  Report Type: Spontaneous
  Country: US (occurrence: None)
  Receive Date: 20160210
  Receipt Date: 20160210
  Transmission Date: 20160526
  Serious: Yes (Life-Threatening, Hospitalization)
  Sender: FDA-Public Use
  Company Number: None

PATIENT
  Age: 70 Year
  Sex: Female

DRUGS (8)
  1. SULFASALAZINE. [Concomitant]
     Active Substance: SULFASALAZINE
  2. NORVASC [Concomitant]
     Active Substance: AMLODIPINE BESYLATE
  3. METHOTREXATE 2.5 MG [Suspect]
     Active Substance: METHOTREXATE
     Indication: RHEUMATOID ARTHRITIS
     Route: 048
  4. PREDNISONE. [Concomitant]
     Active Substance: PREDNISONE
  5. FOLIC ACID. [Concomitant]
     Active Substance: FOLIC ACID
  6. ATENOLOL. [Concomitant]
     Active Substance: ATENOLOL
  7. PANTOPRAZOLE [Concomitant]
     Active Substance: PANTOPRAZOLE SODIUM
  8. FELODIPINE. [Concomitant]
     Active Substance: FELODIPINE

REACTIONS (4)
  - Dehydration [None]
  - Acidosis [None]
  - Pancreatitis acute [None]
  - Renal failure [None]

NARRATIVE: CASE EVENT DATE: 20160104
